FAERS Safety Report 7813504 (Version 3)
Quarter: 2013Q1

REPORT INFORMATION
  Report Type: Spontaneous
  Country: JP (occurrence: JP)
  Receive Date: 20110215
  Receipt Date: 20130305
  Transmission Date: 20140127
  Serious: Yes (Hospitalization, Other)
  Sender: FDA-Public Use
  Company Number: JP-ELI_LILLY_AND_COMPANY-JP201102000712

PATIENT
  Age: 45 Year
  Sex: Male

DRUGS (1)
  1. CIALIS [Suspect]
     Route: 048

REACTIONS (8)
  - Cardiac failure [Unknown]
  - Thrombosis [Unknown]
  - Renal failure acute [Recovered/Resolved]
  - Respiratory failure [Recovered/Resolved]
  - Cerebral infarction [Unknown]
  - Pulmonary oedema [Recovered/Resolved]
  - Counterfeit drug administered [Unknown]
  - Hypertension [Recovered/Resolved]
